FAERS Safety Report 9901158 (Version 1)
Quarter: 2014Q1

REPORT INFORMATION
  Report Type: Spontaneous
  Country: US (occurrence: US)
  Receive Date: 20140217
  Receipt Date: 20140217
  Transmission Date: 20141002
  Serious: No
  Sender: FDA-Public Use
  Company Number: US-PFIZER INC-2014039138

PATIENT
  Sex: Male

DRUGS (1)
  1. METRONIDAZOLE [Suspect]
     Indication: DIARRHOEA
     Dosage: 250 MG, 3X/DAY

REACTIONS (2)
  - Diarrhoea [Unknown]
  - Dysphagia [Unknown]
